FAERS Safety Report 4452555-9 (Version None)
Quarter: 2004Q3

REPORT INFORMATION
  Report Type: 
  Country: None (occurrence: None)
  Receive Date: 20040916
  Receipt Date: 20040831
  Transmission Date: 20050211
  Serious: Yes (Hospitalization)
  Sender: FDA-Public Use
  Company Number: DSA_70397_2004

PATIENT
  Age: 62 Year
  Sex: Male

DRUGS (3)
  1. AZATHIOPRINE [Suspect]
     Indication: COMPLICATIONS OF TRANSPLANTED KIDNEY
  2. CYCLOSPORINE [Concomitant]
  3. STEROIDS [Concomitant]

REACTIONS (13)
  - ATHEROSCLEROSIS [None]
  - BLOOD IMMUNOGLOBULIN M DECREASED [None]
  - BLOOD PRESSURE DIASTOLIC INCREASED [None]
  - BLOOD PRESSURE INADEQUATELY CONTROLLED [None]
  - COMPLICATIONS OF TRANSPLANTED KIDNEY [None]
  - GLOMERULONEPHRITIS PROLIFERATIVE [None]
  - HAEMODIALYSIS [None]
  - ILIAC ARTERY STENOSIS [None]
  - PNEUMONIA [None]
  - PULMONARY OEDEMA [None]
  - RENAL FAILURE [None]
  - UPPER RESPIRATORY TRACT INFECTION [None]
  - URINARY TRACT INFECTION [None]
